FAERS Safety Report 18521620 (Version 1)
Quarter: 2020Q4

REPORT INFORMATION
  Report Type: Spontaneous
  Country: US (occurrence: US)
  Receive Date: 20201118
  Receipt Date: 20201118
  Transmission Date: 20210114
  Serious: Yes (Life-Threatening, Other)
  Sender: FDA-Public Use
  Company Number: None

PATIENT
  Age: 36 Year
  Sex: Female
  Weight: 108 kg

DRUGS (6)
  1. LEVOTHYROXINE. [Concomitant]
     Active Substance: LEVOTHYROXINE
  2. PLAQUENIL [Concomitant]
     Active Substance: HYDROXYCHLOROQUINE SULFATE
  3. VYVANSE [Concomitant]
     Active Substance: LISDEXAMFETAMINE DIMESYLATE
  4. HUMIRA [Concomitant]
     Active Substance: ADALIMUMAB
  5. METFORMIN [Concomitant]
     Active Substance: METFORMIN HYDROCHLORIDE
  6. ELURYNG [Suspect]
     Active Substance: ETHINYL ESTRADIOL\ETONOGESTREL
     Indication: ENDOMETRIOSIS
     Dosage: ?          OTHER FREQUENCY:ONCE A MONTH;?
     Route: 067

REACTIONS (18)
  - Dissociative disorder [None]
  - Executive dysfunction [None]
  - Drug interaction [None]
  - Loss of personal independence in daily activities [None]
  - Quality of life decreased [None]
  - Apathy [None]
  - Chronic disease [None]
  - Fatigue [None]
  - Vaginal haemorrhage [None]
  - Vaginal infection [None]
  - Vaginal odour [None]
  - Weight increased [None]
  - Feeling abnormal [None]
  - Acne [None]
  - Depression [None]
  - Mental impairment [None]
  - Migraine with aura [None]
  - Toxicity to various agents [None]

NARRATIVE: CASE EVENT DATE: 20201118
